FAERS Safety Report 9558737 (Version 1)
Quarter: 2013Q3

REPORT INFORMATION
  Report Type: Spontaneous
  Country: US (occurrence: US)
  Receive Date: 20130926
  Receipt Date: 20130926
  Transmission Date: 20140515
  Serious: No
  Sender: FDA-Public Use
  Company Number: US-BIOGENIDEC-2013BI046576

PATIENT
  Age: 31 Year
  Sex: Female

DRUGS (2)
  1. TECFIDERA [Suspect]
     Indication: MULTIPLE SCLEROSIS
     Route: 048
     Dates: start: 20130515
  2. PRILOSEC [Concomitant]
     Indication: DYSPEPSIA

REACTIONS (3)
  - Sensation of foreign body [Unknown]
  - Flushing [Recovered/Resolved]
  - Palpitations [Unknown]
